FAERS Safety Report 9462511 (Version 2)
Quarter: 2013Q4

REPORT INFORMATION
  Report Type: Spontaneous
  Country: DE (occurrence: DE)
  Receive Date: 20130816
  Receipt Date: 20131220
  Transmission Date: 20140711
  Serious: Yes (Other)
  Sender: FDA-Public Use
  Company Number: DE-TEVA-426220USA

PATIENT
  Sex: Female

DRUGS (1)
  1. BENDAMUSTINE [Suspect]
     Indication: PRODUCT USED FOR UNKNOWN INDICATION
     Route: 042

REACTIONS (3)
  - Akathisia [Not Recovered/Not Resolved]
  - Depression [Unknown]
  - Thrombocytopenia [Unknown]
